FAERS Safety Report 20743758 (Version 1)
Quarter: 2022Q2

REPORT INFORMATION
  Report Type: Spontaneous
  Country: CN (occurrence: None)
  Receive Date: 20220425
  Receipt Date: 20220425
  Transmission Date: 20220720
  Serious: Yes (Other)
  Sender: FDA-Public Use
  Company Number: CN-ROCHE-3079758

PATIENT
  Age: 67 Year
  Sex: Female

DRUGS (13)
  1. MABTHERA [Suspect]
     Active Substance: RITUXIMAB
     Indication: Non-Hodgkin^s lymphoma
     Dosage: D0
     Route: 065
     Dates: start: 20140324, end: 20140704
  2. MABTHERA [Suspect]
     Active Substance: RITUXIMAB
     Route: 065
     Dates: start: 20201001
  3. GAZYVA [Suspect]
     Active Substance: OBINUTUZUMAB
     Indication: Non-Hodgkin^s lymphoma
     Route: 042
     Dates: start: 20220304
  4. CYCLOPHOSPHAMIDE [Concomitant]
     Active Substance: CYCLOPHOSPHAMIDE
     Indication: Non-Hodgkin^s lymphoma
     Dosage: D1
     Dates: start: 20140324, end: 20140704
  5. CYCLOPHOSPHAMIDE [Concomitant]
     Active Substance: CYCLOPHOSPHAMIDE
     Dates: start: 20201001
  6. PIRARUBICIN [Concomitant]
     Active Substance: PIRARUBICIN
     Indication: Non-Hodgkin^s lymphoma
     Dosage: D1-D2
     Dates: start: 20140324, end: 20140704
  7. PIRARUBICIN [Concomitant]
     Active Substance: PIRARUBICIN
     Dates: start: 20201001
  8. VINCRISTINE [Concomitant]
     Active Substance: VINCRISTINE
     Indication: Non-Hodgkin^s lymphoma
     Dosage: D1
     Dates: start: 20140324, end: 20140704
  9. VINCRISTINE [Concomitant]
     Active Substance: VINCRISTINE
     Dates: start: 20201001
  10. PREDNISONE [Concomitant]
     Active Substance: PREDNISONE
     Indication: Non-Hodgkin^s lymphoma
     Dosage: D1-D5
     Route: 048
     Dates: start: 20140324, end: 20140704
  11. PREDNISONE [Concomitant]
     Active Substance: PREDNISONE
     Dates: start: 20201001
  12. LENALIDOMIDE [Concomitant]
     Active Substance: LENALIDOMIDE
     Indication: Non-Hodgkin^s lymphoma
  13. BENDAMUSTINE [Concomitant]
     Active Substance: BENDAMUSTINE
     Indication: Non-Hodgkin^s lymphoma
     Dates: start: 20220304

REACTIONS (3)
  - Disease recurrence [Unknown]
  - Myelosuppression [Unknown]
  - Off label use [Unknown]
